FAERS Safety Report 4686386-1 (Version None)
Quarter: 2005Q2

REPORT INFORMATION
  Report Type: 
  Country: None (occurrence: None)
  Receive Date: 20050606
  Receipt Date: 20050525
  Transmission Date: 20051028
  Serious: Yes (Hospitalization)
  Sender: FDA-Public Use
  Company Number: 2005079018

PATIENT
  Age: 74 Year
  Sex: Female

DRUGS (11)
  1. LITHIUM CARBONATE [Suspect]
     Indication: BIPOLAR DISORDER
     Dosage: 750 MG (250 MG, 3 IN 1 D),
  2. LEVOMEPROMAZINE (LEVOMEPROMAZINE) [Suspect]
     Indication: ILL-DEFINED DISORDER
     Dosage: 6.25 MG,
  3. LISINOPRIL [Suspect]
     Indication: ILL-DEFINED DISORDER
     Dosage: 30 MG,
  4. RISPERIDONE [Suspect]
     Indication: ILL-DEFINED DISORDER
     Dosage: 0.5 MG (0.25 MG, 2 IN 1 D),
  5. ESCITALOPRAM OXALATE [Suspect]
     Indication: ILL-DEFINED DISORDER
     Dosage: 10 MG,
  6. IRBESARTAN [Suspect]
     Indication: ILL-DEFINED DISORDER
     Dosage: 300 MG,
  7. LORMETAZEPAM (LORMETAZEPAM) [Concomitant]
  8. METFORMIN HCL [Concomitant]
  9. FUROSEMIDE [Concomitant]
  10. REPAGLINIDE (REPAGLINIDE) [Concomitant]
  11. SPIRONOLACTONE [Concomitant]

REACTIONS (10)
  - BLOOD CREATINE ABNORMAL [None]
  - CONFUSIONAL STATE [None]
  - DIARRHOEA [None]
  - DRUG INTERACTION [None]
  - DRUG TOXICITY [None]
  - DYSARTHRIA [None]
  - GLASGOW COMA SCALE ABNORMAL [None]
  - LETHARGY [None]
  - NERVOUS SYSTEM DISORDER [None]
  - TREMOR [None]
